FAERS Safety Report 14192916 (Version 1)
Quarter: 2017Q4

REPORT INFORMATION
  Report Type: Spontaneous
  Country: US (occurrence: US)
  Receive Date: 20171116
  Receipt Date: 20171116
  Transmission Date: 20180321
  Serious: No
  Sender: FDA-Public Use
  Company Number: US-009507513-1711USA000197

PATIENT
  Sex: Male
  Weight: 102.4 kg

DRUGS (1)
  1. JANUVIA [Suspect]
     Active Substance: SITAGLIPTIN PHOSPHATE
     Dosage: 50 MG, DAILY
     Route: 048

REACTIONS (4)
  - Drug dispensing error [Unknown]
  - No adverse event [Unknown]
  - Product container issue [Unknown]
  - Product quality issue [Unknown]
